FAERS Safety Report 6447314-1 (Version None)
Quarter: 2009Q4

REPORT INFORMATION
  Report Type: 
  Country: None (occurrence: None)
  Receive Date: 20091116
  Receipt Date: 20091109
  Transmission Date: 20100525
  Serious: Yes (Death, Hospitalization)
  Sender: FDA-Public Use
  Company Number: 427527

PATIENT
  Age: 87 Year
  Sex: Female
  Weight: 34 kg

DRUGS (8)
  1. VANCOMYCIN [Suspect]
     Indication: PNEUMONIA STAPHYLOCOCCAL
     Dosage: .5 G, INTRAVENOUS
     Route: 042
     Dates: start: 20090904, end: 20090919
  2. SULBACTAM SODIUM [Concomitant]
  3. (CILASTATIN SODIUM) [Concomitant]
  4. CLONAZEPAM [Concomitant]
  5. (ALL OTHER THERAPEUTIC PRODUCTS) [Concomitant]
  6. (NICERGOLINE) [Concomitant]
  7. FAMOTIDINE [Concomitant]
  8. ASPIRIN [Concomitant]

REACTIONS (2)
  - BLOOD CREATININE INCREASED [None]
  - BLOOD UREA INCREASED [None]
